FAERS Safety Report 10498305 (Version 3)
Quarter: 2014Q4

REPORT INFORMATION
  Report Type: Spontaneous
  Country: GB (occurrence: GB)
  Receive Date: 20141006
  Receipt Date: 20141121
  Transmission Date: 20150528
  Serious: Yes (Other)
  Sender: FDA-Public Use
  Company Number: GB-TEVA-510716ISR

PATIENT
  Age: 32 Year
  Sex: Female
  Weight: 86.4 kg

DRUGS (7)
  1. ATRA [Suspect]
     Active Substance: TRETINOIN
     Indication: LEUKAEMIA RECURRENT
     Dates: start: 201309
  2. CYCLO/TB [Suspect]
     Active Substance: BUSULFAN\CYCLOPHOSPHAMIDE\THIOTEPA
     Indication: LEUKAEMIA RECURRENT
     Route: 065
     Dates: start: 201212
  3. ATRA [Suspect]
     Active Substance: TRETINOIN
     Indication: ACUTE PROMYELOCYTIC LEUKAEMIA
     Route: 065
     Dates: start: 201002
  4. IDARUBICIN [Suspect]
     Active Substance: IDARUBICIN
     Indication: LEUKAEMIA RECURRENT
     Route: 065
     Dates: start: 201309
  5. TRISENOX [Suspect]
     Active Substance: ARSENIC TRIOXIDE
     Indication: LEUKAEMIA RECURRENT
     Dates: start: 201309
  6. IDARUBICIN [Suspect]
     Active Substance: IDARUBICIN
     Indication: ACUTE PROMYELOCYTIC LEUKAEMIA
     Route: 065
     Dates: start: 201002
  7. MYLOTARG [Suspect]
     Active Substance: GEMTUZUMAB OZOGAMICIN
     Indication: LEUKAEMIA RECURRENT
     Route: 065
     Dates: start: 201309

REACTIONS (3)
  - Lower respiratory tract infection fungal [Unknown]
  - Leukaemia recurrent [Unknown]
  - Malaise [Unknown]

NARRATIVE: CASE EVENT DATE: 201309
